FAERS Safety Report 8912665 (Version 1)
Quarter: 2012Q4

REPORT INFORMATION
  Report Type: 
  Country: JP (occurrence: JP)
  Receive Date: 20121116
  Receipt Date: 20121116
  Transmission Date: 20130627
  Serious: Yes (Other)
  Sender: FDA-Public Use
  Company Number: JP-ROCHE-1155490

PATIENT
  Age: 74 Year
  Sex: Male

DRUGS (7)
  1. RITUXIMAB [Suspect]
     Indication: IMMUNOSUPPRESSION
     Route: 065
  2. MYCOPHENOLATE MOFETIL [Suspect]
     Indication: IMMUNOSUPPRESSION
     Route: 065
  3. MYCOPHENOLATE MOFETIL [Suspect]
     Route: 065
  4. GANCICLOVIR [Suspect]
     Indication: IMMUNOSUPPRESSION
     Route: 065
  5. BASILIXIMAB [Suspect]
     Indication: IMMUNOSUPPRESSION
     Route: 065
  6. METHYLPREDNISOLONE [Suspect]
     Indication: IMMUNOSUPPRESSION
     Route: 065
  7. CYCLOSPORINE [Suspect]
     Indication: IMMUNOSUPPRESSION
     Route: 065

REACTIONS (3)
  - Neutropenia [Recovered/Resolved]
  - Leukopenia [Recovered/Resolved]
  - Cytomegalovirus infection [Not Recovered/Not Resolved]
